FAERS Safety Report 4959956-0 (Version None)
Quarter: 2006Q1

REPORT INFORMATION
  Report Type: 
  Country: None (occurrence: None)
  Receive Date: 20060331
  Receipt Date: 20060220
  Transmission Date: 20060701
  Serious: Yes (Hospitalization)
  Sender: FDA-Public Use
  Company Number: DE-MERCK-0602DEU00110

PATIENT
  Age: 65 Year
  Sex: Female

DRUGS (7)
  1. FOSAMAX [Suspect]
     Indication: OSTEOPOROSIS
     Route: 048
     Dates: start: 20010101, end: 20050101
  2. DICLOFENAC [Concomitant]
     Route: 065
  3. GINGER [Concomitant]
     Route: 065
  4. [THERAPY UNSPECIFIED] [Concomitant]
     Route: 065
  5. AMLODIPINE BESYLATE [Concomitant]
     Indication: MIGRAINE
     Route: 065
     Dates: start: 19950101
  6. AMLODIPINE BESYLATE [Concomitant]
     Indication: CEREBROVASCULAR DISORDER
     Route: 065
     Dates: start: 19950101
  7. PENTOXIFYLLINE [Concomitant]
     Indication: MIGRAINE
     Route: 065
     Dates: start: 19950101

REACTIONS (2)
  - APHTHOUS STOMATITIS [None]
  - STOMATITIS [None]
